FAERS Safety Report 23625975 (Version 1)
Quarter: 2024Q1

REPORT INFORMATION
  Report Type: Report from Study
  Country: FR (occurrence: FR)
  Receive Date: 20240313
  Receipt Date: 20240313
  Transmission Date: 20240409
  Serious: Yes (Other)
  Sender: FDA-Public Use
  Company Number: FR-SUN PHARMACEUTICAL INDUSTRIES LTD-2024R1-435439

PATIENT
  Age: 86 Year
  Sex: Male

DRUGS (2)
  1. PREDNISOLONE [Suspect]
     Active Substance: PREDNISOLONE
     Indication: Pleural mesothelioma
     Dosage: 7.5 MILLIGRAM PER KILOGRAM
     Route: 042
  2. PREDNISONE [Suspect]
     Active Substance: PREDNISONE
     Indication: Pleural mesothelioma
     Dosage: 1 MILLIGRAM  PER KILOGRAM
     Route: 048

REACTIONS (2)
  - Therapeutic response decreased [Unknown]
  - Disease progression [Unknown]
